FAERS Safety Report 6638527-4 (Version None)
Quarter: 2010Q1

REPORT INFORMATION
  Report Type: 
  Country: None (occurrence: None)
  Receive Date: 20100316
  Receipt Date: 20100316
  Transmission Date: 20100710
  Serious: Yes (Other)
  Sender: FDA-Public Use
  Company Number: None

PATIENT
  Age: 58 Year
  Sex: Female
  Weight: 91.6 kg

DRUGS (1)
  1. HYDRALAZINE HCL [Suspect]
     Indication: HYPERTENSION
     Dosage: 20 MG Q6HR PRN IV BOLUS
     Route: 040
     Dates: start: 20100303, end: 20100303

REACTIONS (6)
  - ANXIETY [None]
  - CHEST PAIN [None]
  - ERYTHEMA [None]
  - FLUSHING [None]
  - PALPITATIONS [None]
  - PRODUCT QUALITY ISSUE [None]
